FAERS Safety Report 13997632 (Version 2)
Quarter: 2018Q1

REPORT INFORMATION
  Report Type: Spontaneous
  Country: US (occurrence: US)
  Receive Date: 20170921
  Receipt Date: 20180131
  Transmission Date: 20180508
  Serious: No
  Sender: FDA-Public Use
  Company Number: US-BAYER-2017-181083

PATIENT
  Age: 70 Year
  Sex: Female
  Weight: 40 kg

DRUGS (12)
  1. MIRALAX [Suspect]
     Active Substance: POLYETHYLENE GLYCOL 3350
     Indication: GASTROINTESTINAL DISORDER
     Dosage: UNK
     Route: 048
     Dates: start: 201505
  2. MIRALAX [Suspect]
     Active Substance: POLYETHYLENE GLYCOL 3350
     Indication: CONSTIPATION
  3. OMEPRAZOLE. [Concomitant]
     Active Substance: OMEPRAZOLE
     Dosage: UNK
  4. FLORASTOR [Concomitant]
     Active Substance: SACCHAROMYCES CEREVISIAE
  5. SIMVASTATIN. [Concomitant]
     Active Substance: SIMVASTATIN
     Dosage: UNK
  6. MIRALAX [Suspect]
     Active Substance: POLYETHYLENE GLYCOL 3350
     Indication: IRRITABLE BOWEL SYNDROME
     Dosage: UNK
     Route: 048
     Dates: start: 201504
  7. LEVOTHYROXINE. [Concomitant]
     Active Substance: LEVOTHYROXINE
     Dosage: UNK
  8. TYLENOL EXTRA STRENGTH [Concomitant]
     Active Substance: ACETAMINOPHEN
     Dosage: UNK
  9. XANAX [Concomitant]
     Active Substance: ALPRAZOLAM
     Dosage: UNK
  10. CENTRUM [Concomitant]
     Active Substance: VITAMINS
     Dosage: UNK
  11. MIRALAX [Suspect]
     Active Substance: POLYETHYLENE GLYCOL 3350
     Indication: GASTROINTESTINAL DISORDER
     Dosage: UNK
     Route: 048
     Dates: start: 201505
  12. CITRACAL + D [CALCIUM CITRATE,COLECALCIFEROL] [Concomitant]
     Dosage: UNK

REACTIONS (11)
  - Frequent bowel movements [None]
  - Product use issue [Unknown]
  - Product use issue [Unknown]
  - Abdominal pain upper [Unknown]
  - Product taste abnormal [None]
  - Abdominal pain upper [Not Recovered/Not Resolved]
  - Poor quality drug administered [None]
  - Drug effect incomplete [Unknown]
  - Malaise [Unknown]
  - Product use in unapproved indication [Unknown]
  - Product odour abnormal [None]

NARRATIVE: CASE EVENT DATE: 2015
